FAERS Safety Report 10185310 (Version 2)
Quarter: 2014Q2

REPORT INFORMATION
  Report Type: Spontaneous
  Country: US (occurrence: US)
  Receive Date: 20140521
  Receipt Date: 20140617
  Transmission Date: 20141212
  Serious: No
  Sender: FDA-Public Use
  Company Number: US-PFIZER INC-2014136388

PATIENT
  Age: 57 Year
  Sex: Female
  Weight: 47.2 kg

DRUGS (3)
  1. LOMOTIL [Suspect]
     Indication: DIARRHOEA
     Dosage: 2.5 MG/0.025 MG, AS NEEDED
     Dates: start: 201403
  2. HUMALOG [Concomitant]
     Indication: DIABETES MELLITUS
     Dosage: UNK
  3. LANTUS [Concomitant]
     Indication: DIABETES MELLITUS
     Dosage: 25 MG, DAILY

REACTIONS (1)
  - Drug ineffective [Unknown]
